FAERS Safety Report 4703802-7 (Version None)
Quarter: 2005Q2

REPORT INFORMATION
  Report Type: 
  Country: None (occurrence: None)
  Receive Date: 20050629
  Receipt Date: 20050629
  Transmission Date: 20051028
  Serious: Yes (Life-Threatening)
  Sender: FDA-Public Use
  Company Number: None

PATIENT
  Age: 53 Year
  Sex: Female
  Weight: 64.4 kg

DRUGS (11)
  1. REMICADE [Suspect]
     Indication: CROHN'S DISEASE
     Dosage: 300MG   ONCE A MONTH   INTRAVENOU
     Route: 042
     Dates: start: 20040930, end: 20041223
  2. PREDNISONE [Suspect]
     Indication: CROHN'S DISEASE
     Dosage: 20MG   DAILY   ORAL
     Route: 048
  3. PROGESTERONE [Concomitant]
  4. FLONASE [Concomitant]
  5. LEXAPRO [Concomitant]
  6. ACETAMINOPHEN [Concomitant]
  7. FLORASTOR [Concomitant]
  8. ASACOL [Concomitant]
  9. CLARITIN [Concomitant]
  10. FISH OIL [Concomitant]
  11. LEVOFLOXACIN [Concomitant]

REACTIONS (2)
  - SEPSIS [None]
  - SYNOVIAL CYST [None]
